FAERS Safety Report 7829126-7 (Version None)
Quarter: 2011Q4

REPORT INFORMATION
  Report Type: 
  Country: None (occurrence: None)
  Receive Date: 20111020
  Receipt Date: 20111010
  Transmission Date: 20120403
  Serious: Yes (Hospitalization)
  Sender: FDA-Public Use
  Company Number: PHHY2011FR80761

PATIENT
  Sex: Male
  Weight: 108 kg

DRUGS (8)
  1. ASPIRIN [Concomitant]
     Dosage: 1 DF, QD
  2. ALISKIREN [Suspect]
     Dosage: 300 MG, DAILY
     Dates: start: 20101118
  3. LERCANIDIPINE [Concomitant]
     Dosage: 1 DF, QD
  4. LEVEMIR [Concomitant]
     Dosage: 1 DF, QD
  5. BISOPROLOL [Concomitant]
     Dosage: 1 DF, QD
  6. INDAPAMIDE [Concomitant]
     Dosage: 1 DF, QD
  7. PLAVIX [Concomitant]
  8. ZOCOR [Concomitant]
     Dosage: 1 DF, QD

REACTIONS (2)
  - ISCHAEMIC STROKE [None]
  - HEMIPARESIS [None]
